FAERS Safety Report 7559122-9 (Version None)
Quarter: 2011Q2

REPORT INFORMATION
  Report Type: 
  Country: None (occurrence: None)
  Receive Date: 20110621
  Receipt Date: 20110613
  Transmission Date: 20111010
  Serious: No
  Sender: FDA-Public Use
  Company Number: US-MYLANLABS-2011S1007013

PATIENT
  Sex: Female

DRUGS (2)
  1. ASPIRIN [Concomitant]
  2. NIFEDIPINE [Suspect]
     Indication: BLOOD PRESSURE INCREASED
     Route: 048
     Dates: start: 20101205, end: 20101230

REACTIONS (8)
  - DYSSTASIA [None]
  - DYSGEUSIA [None]
  - APHAGIA [None]
  - MALAISE [None]
  - NAUSEA [None]
  - FATIGUE [None]
  - HEADACHE [None]
  - FEELING ABNORMAL [None]
